FAERS Safety Report 6545143-1 (Version None)
Quarter: 2010Q1

REPORT INFORMATION
  Report Type: 
  Country: None (occurrence: None)
  Receive Date: 20100121
  Receipt Date: 20100113
  Transmission Date: 20100710
  Serious: Yes (Hospitalization)
  Sender: FDA-Public Use
  Company Number: US-AMGEN-QUU381213

PATIENT
  Sex: Female

DRUGS (2)
  1. ENBREL [Suspect]
     Indication: PSORIATIC ARTHROPATHY
     Route: 058
     Dates: end: 20090801
  2. ENBREL [Suspect]
     Indication: PSORIASIS

REACTIONS (5)
  - DIABETES MELLITUS [None]
  - INFECTION [None]
  - NASOPHARYNGITIS [None]
  - PSORIASIS [None]
  - SYNCOPE [None]
